FAERS Safety Report 7730172-2 (Version None)
Quarter: 2011Q3

REPORT INFORMATION
  Report Type: 
  Country: None (occurrence: None)
  Receive Date: 20110906
  Receipt Date: 20110830
  Transmission Date: 20111222
  Serious: Yes (Other)
  Sender: FDA-Public Use
  Company Number: PHHY2011US11406

PATIENT
  Sex: Female
  Weight: 64.86 kg

DRUGS (2)
  1. EXJADE [Suspect]
     Indication: NEOPLASM
     Dosage: 500 MG, DAILY
     Route: 048
     Dates: start: 20080701
  2. EXJADE [Suspect]
     Indication: IRON METABOLISM DISORDER
     Dosage: 500 MG, TID
     Route: 048
     Dates: start: 20080708

REACTIONS (3)
  - COLITIS ISCHAEMIC [None]
  - RASH PRURITIC [None]
  - DIARRHOEA [None]
